FAERS Safety Report 9421085 (Version 1)
Quarter: 2013Q3

REPORT INFORMATION
  Report Type: Spontaneous
  Country: US (occurrence: US)
  Receive Date: 20130725
  Receipt Date: 20130725
  Transmission Date: 20140515
  Serious: No
  Sender: FDA-Public Use
  Company Number: US-009507513-1307USA012471

PATIENT
  Sex: Female

DRUGS (1)
  1. SAPHRIS [Suspect]
     Indication: MANIA
     Dosage: 5 MG, AT NIGHT
     Dates: start: 20100809

REACTIONS (5)
  - Abnormal behaviour [Unknown]
  - Agitation [Unknown]
  - Feeling abnormal [Unknown]
  - Emotional disorder [Unknown]
  - Drug ineffective [Unknown]
